FAERS Safety Report 8374346-9 (Version None)
Quarter: 2012Q2

REPORT INFORMATION
  Report Type: 
  Country: None (occurrence: None)
  Receive Date: 20120521
  Receipt Date: 20120511
  Transmission Date: 20120825
  Serious: Yes (Hospitalization)
  Sender: FDA-Public Use
  Company Number: US-VERTEX PHARMACEUTICALS INC.-AE-2012-005607

PATIENT
  Sex: Male
  Weight: 105.78 kg

DRUGS (17)
  1. PEGASYS [Concomitant]
     Indication: HEPATITIS C
     Route: 058
     Dates: start: 20120127, end: 20120406
  2. FLEXERIL [Concomitant]
     Indication: MUSCLE SPASMS
  3. RANITIDINE [Concomitant]
  4. CALMOSEPTINE [Concomitant]
  5. INCIVEK [Suspect]
     Indication: HEPATITIS C
     Route: 048
     Dates: start: 20120127, end: 20120402
  6. RIBAVIRIN [Concomitant]
     Indication: HEPATITIS C
     Route: 048
     Dates: start: 20120127, end: 20120402
  7. OMEPRAZOLE [Concomitant]
     Indication: GASTROOESOPHAGEAL REFLUX DISEASE
  8. MARIJUANA [Concomitant]
  9. TRAMADOL HYDROCHLORIDE [Concomitant]
     Indication: PAIN
  10. CLONAZEPAM [Concomitant]
  11. QUETIAPINE [Concomitant]
     Indication: BIPOLAR DISORDER
  12. BENICAR [Concomitant]
     Indication: HYPERTENSION
  13. PROVENTIL [Concomitant]
  14. DICLOFENAC SODIUM [Concomitant]
  15. ADDERALL 5 [Concomitant]
  16. BUPROPION HYDROCHLORIDE [Concomitant]
  17. OXYGEN [Concomitant]

REACTIONS (8)
  - NAUSEA [None]
  - HELICOBACTER TEST POSITIVE [None]
  - FATIGUE [None]
  - HAEMATEMESIS [None]
  - GASTRITIS [None]
  - VOMITING [None]
  - DYSPEPSIA [None]
  - OROPHARYNGEAL PAIN [None]
